FAERS Safety Report 17474879 (Version 2)
Quarter: 2020Q1

REPORT INFORMATION
  Report Type: Spontaneous
  Country: US (occurrence: US)
  Receive Date: 20200228
  Receipt Date: 20200327
  Transmission Date: 20200409
  Serious: No
  Sender: FDA-Public Use
  Company Number: US-ASTRAZENECA-2020SE29262

PATIENT
  Sex: Male

DRUGS (4)
  1. BYDUREON BCISE [Suspect]
     Active Substance: EXENATIDE
     Indication: TYPE 2 DIABETES MELLITUS
     Route: 065
  2. ASPIRIN. [Concomitant]
     Active Substance: ASPIRIN
  3. INVOKANA [Concomitant]
     Active Substance: CANAGLIFLOZIN
  4. PLAVIX [Concomitant]
     Active Substance: CLOPIDOGREL BISULFATE
     Indication: MYOCARDIAL INFARCTION

REACTIONS (6)
  - Injection site mass [Not Recovered/Not Resolved]
  - Needle issue [Unknown]
  - Injection site haemorrhage [Unknown]
  - Device issue [Unknown]
  - Product dose omission [Unknown]
  - Device leakage [Unknown]
